FAERS Safety Report 19089602 (Version 3)
Quarter: 2021Q4

REPORT INFORMATION
  Report Type: Report from Study
  Country: TZ (occurrence: TZ)
  Receive Date: 20210403
  Receipt Date: 20211231
  Transmission Date: 20220303
  Serious: Yes (Hospitalization, Other)
  Sender: FDA-Public Use
  Company Number: TZ-CIPLA LTD.-2021TZ02434

PATIENT

DRUGS (4)
  1. LOPINAVIR\RITONAVIR [Suspect]
     Active Substance: LOPINAVIR\RITONAVIR
     Indication: HIV infection
     Dosage: 1 DOSAGE FORM, BID (200/50 MG)
     Route: 048
     Dates: start: 20180406, end: 20180726
  2. LOPINAVIR\RITONAVIR [Suspect]
     Active Substance: LOPINAVIR\RITONAVIR
     Dosage: 1 DOSAGE FORM, BID (240/60 MG)
     Route: 048
     Dates: start: 20180406, end: 20190404
  3. ABACAVIR\LAMIVUDINE [Suspect]
     Active Substance: ABACAVIR\LAMIVUDINE
     Indication: HIV infection
     Dosage: 1 DOSAGE FORM, BID (75/150 MG)
     Route: 048
     Dates: start: 20180406, end: 20180726
  4. ABACAVIR\LAMIVUDINE [Suspect]
     Active Substance: ABACAVIR\LAMIVUDINE
     Dosage: 1 DOSAGE FORM, BID (180/90 MG)
     Route: 048
     Dates: start: 20180726, end: 20190404

REACTIONS (9)
  - Sepsis [Recovered/Resolved]
  - Pneumonia [Recovered/Resolved]
  - Tonsillitis [Recovered/Resolved]
  - Otitis media [Recovered/Resolved]
  - Cough [Recovered/Resolved]
  - Dermatitis [Recovered/Resolved]
  - Vomiting [Recovered/Resolved]
  - Pyrexia [Recovered/Resolved]
  - Rash [Recovered/Resolved]

NARRATIVE: CASE EVENT DATE: 20180101
